FAERS Safety Report 8654757 (Version 2)
Quarter: 2013Q1

REPORT INFORMATION
  Report Type: Spontaneous
  Country: BR (occurrence: BR)
  Receive Date: 20120709
  Receipt Date: 20130115
  Transmission Date: 20140127
  Serious: Yes (Death, Other)
  Sender: FDA-Public Use
  Company Number: PHHY2012BR057894

PATIENT
  Age: 70 Year
  Sex: 0

DRUGS (4)
  1. GLIVEC [Suspect]
     Indication: CHRONIC MYELOID LEUKAEMIA
     Dosage: 400 MG
     Route: 048
     Dates: start: 2004, end: 2009
  2. NILOTINIB [Suspect]
  3. DASATINIB [Suspect]
  4. HYDREA [Suspect]

REACTIONS (3)
  - Death [Fatal]
  - Arrhythmia [Unknown]
  - Cardiac failure [Unknown]
